FAERS Safety Report 8003288-3 (Version None)
Quarter: 2011Q4

REPORT INFORMATION
  Report Type: 
  Country: None (occurrence: None)
  Receive Date: 20111219
  Receipt Date: 20111212
  Transmission Date: 20120403
  Serious: Yes (Death, Hospitalization, Other)
  Sender: FDA-Public Use
  Company Number: 2011SP010142

PATIENT
  Age: 70 Year
  Sex: Female
  Weight: 42.5 kg

DRUGS (12)
  1. BAKTAR(SULFAMETHOXAZILE/TRIMETHOPRIM) [Concomitant]
  2. TEMODAL [Suspect]
     Indication: OLIGODENDROGLIOMA
     Dosage: 150 MG/M2,QD,PO
     Route: 048
     Dates: start: 20070219, end: 20070223
  3. TEMODAL [Suspect]
     Indication: OLIGODENDROGLIOMA
     Dosage: 150 MG/M2,QD,PO
     Route: 048
     Dates: start: 20070820, end: 20070824
  4. TEMODAL [Suspect]
     Indication: OLIGODENDROGLIOMA
     Dosage: 150 MG/M2,QD,PO
     Route: 048
     Dates: start: 20070326, end: 20070330
  5. TEMODAL [Suspect]
     Indication: OLIGODENDROGLIOMA
     Dosage: 150 MG/M2,QD,PO
     Route: 048
     Dates: start: 20070521, end: 20070525
  6. TEMODAL [Suspect]
     Indication: OLIGODENDROGLIOMA
     Dosage: 150 MG/M2,QD,PO
     Route: 048
     Dates: start: 20070618, end: 20070622
  7. TEMODAL [Suspect]
     Indication: OLIGODENDROGLIOMA
     Dosage: 150 MG/M2,QD,PO
     Route: 048
     Dates: start: 20061002, end: 20061006
  8. TEMODAL [Suspect]
     Indication: OLIGODENDROGLIOMA
     Dosage: 150 MG/M2,QD,PO
     Route: 048
     Dates: start: 20061030, end: 20061103
  9. TEMODAL [Suspect]
     Indication: OLIGODENDROGLIOMA
     Dosage: 150 MG/M2,QD,PO
     Route: 048
     Dates: start: 20070423, end: 20070427
  10. TEMODAL [Suspect]
     Indication: OLIGODENDROGLIOMA
     Dosage: 150 MG/M2,QD,PO
     Route: 048
     Dates: start: 20070723, end: 20070727
  11. TEMODAL [Suspect]
     Indication: OLIGODENDROGLIOMA
     Dosage: 150 MG/M2,QD,PO
     Route: 048
     Dates: start: 20070115, end: 20070119
  12. TEMODAL [Suspect]
     Indication: OLIGODENDROGLIOMA
     Dosage: 150 MG/M2,QD,PO
     Route: 048
     Dates: start: 20061127, end: 20061201

REACTIONS (5)
  - ACCIDENT [None]
  - HYPOALBUMINAEMIA [None]
  - LYMPHOCYTE COUNT DECREASED [None]
  - ANAEMIA [None]
  - PNEUMONIA [None]
